FAERS Safety Report 9287745 (Version 1)
Quarter: 2012Q4

REPORT INFORMATION
  Report Type: Spontaneous
  Country: US (occurrence: None)
  Receive Date: 20120919
  Receipt Date: 20120919
  Transmission Date: 20130627
  Serious: No
  Sender: FDA-Public Use
  Company Number: 2011AA001191

PATIENT
  Sex: Female
  Weight: 63.5 kg

DRUGS (6)
  1. STANDARDIZED TIMOTHY GRASS POLLEN [Suspect]
     Route: 058
     Dates: start: 20110916, end: 20110916
  2. BLINDED THERAPY [Suspect]
  3. DESVENLAFAXINE [Concomitant]
  4. SUCCINATE [Concomitant]
  5. BUPROPION [Concomitant]
  6. SALBUTAMOL [Concomitant]

REACTIONS (1)
  - Hypersensitivity [None]
